FAERS Safety Report 13478316 (Version 5)
Quarter: 2018Q1

REPORT INFORMATION
  Report Type: Report from Study
  Country: US (occurrence: US)
  Receive Date: 20170424
  Receipt Date: 20180125
  Transmission Date: 20180508
  Serious: No
  Sender: FDA-Public Use
  Company Number: US-AMGEN-USASL2017033340

PATIENT
  Age: 71 Year
  Sex: Female

DRUGS (1)
  1. REPATHA [Suspect]
     Active Substance: EVOLOCUMAB
     Indication: BLOOD CHOLESTEROL INCREASED
     Dosage: 140 MG, Q2WK
     Route: 065
     Dates: end: 2017

REACTIONS (7)
  - Cough [Unknown]
  - Rash [Unknown]
  - Fat tissue increased [Unknown]
  - Weight increased [Unknown]
  - Oropharyngeal pain [Unknown]
  - Rhinorrhoea [Recovering/Resolving]
  - Skin mass [Unknown]
